FAERS Safety Report 8364482-5 (Version None)
Quarter: 2012Q2

REPORT INFORMATION
  Report Type: 
  Country: None (occurrence: None)
  Receive Date: 20120516
  Receipt Date: 20120508
  Transmission Date: 20120825
  Serious: Yes (Hospitalization, Other)
  Sender: FDA-Public Use
  Company Number: US-BAYER-2012-018054

PATIENT
  Age: 40 Year
  Sex: Female
  Weight: 79 kg

DRUGS (10)
  1. TRAZODONE HCL [Concomitant]
     Dosage: 50 MG, BEDTIME
     Dates: start: 20091214
  2. TRICOR [Concomitant]
     Dosage: 145 MG, UNK
     Dates: end: 20091214
  3. FLUTICASONE PROPIONATE [Concomitant]
     Dosage: 50 MCG; 2 SPRAYS EACH NOSTRIL, ONCE DAILY
     Dates: start: 20091214
  4. XANAX [Concomitant]
     Dosage: 4 MG, UNK
     Dates: end: 20091214
  5. CARBAMAZEPINE [Concomitant]
     Dosage: 200 MG TWICE DAILY
     Dates: start: 20091130
  6. LAMICTAL [Concomitant]
     Dosage: 25 MG,DAILY
     Dates: start: 20091214
  7. SEROQUEL [Concomitant]
     Dosage: 100 MG TO 300 MG AT BEDTIME
     Dates: end: 20091112
  8. AZITHROMYCIN [Concomitant]
     Dosage: 250 MG; TWO TABLETS ON DAY 1, AND ONE TABLET DAILY FOR 4 DAYS THEREAFTER
     Dates: start: 20091214
  9. YAZ [Suspect]
     Indication: ACNE
     Dosage: UNK
     Dates: start: 20070901, end: 20090101
  10. CYMBALTA [Concomitant]
     Dosage: 60 MG DAILY
     Dates: end: 20091214

REACTIONS (2)
  - GALLBLADDER DISORDER [None]
  - CHOLECYSTITIS CHRONIC [None]
